FAERS Safety Report 8576541-2 (Version None)
Quarter: 2012Q3

REPORT INFORMATION
  Report Type: 
  Country: None (occurrence: None)
  Receive Date: 20120725
  Receipt Date: 20120711
  Transmission Date: 20120928
  Serious: Yes (Disabling, Other)
  Sender: FDA-Public Use
  Company Number: 1353059

PATIENT
  Sex: Male

DRUGS (3)
  1. BUPIVACAINE HCL [Suspect]
     Indication: ANALGESIC THERAPY
     Dates: start: 20070515
  2. SOLU-CORTEF [Suspect]
     Indication: ANALGESIC THERAPY
     Dates: start: 20070515
  3. MORPHINE SULFATE [Suspect]
     Indication: ANALGESIC THERAPY
     Dosage: INTRA-ARTICULAR
     Route: 014
     Dates: start: 20070515

REACTIONS (1)
  - CHONDROLYSIS [None]
